FAERS Safety Report 13543635 (Version 6)
Quarter: 2017Q3

REPORT INFORMATION
  Report Type: Report from Study
  Country: KR (occurrence: KR)
  Receive Date: 20170515
  Receipt Date: 20170816
  Transmission Date: 20171127
  Serious: Yes (Death, Hospitalization)
  Sender: FDA-Public Use
  Company Number: KR-ROCHE-1933494

PATIENT
  Age: 70 Year
  Sex: Male
  Weight: 60 kg

DRUGS (11)
  1. PLAVIX [Concomitant]
     Active Substance: CLOPIDOGREL BISULFATE
     Indication: MYOCARDIAL INFARCTION
     Route: 048
     Dates: start: 2016, end: 20170501
  2. FEROBA-U [Concomitant]
     Indication: PROPHYLAXIS
     Route: 048
     Dates: start: 20161107, end: 20170501
  3. CISPLATIN. [Suspect]
     Active Substance: CISPLATIN
     Indication: HER-2 POSITIVE GASTRIC CANCER
     Dosage: MOST RECENT DOSE (107MG) PRIOR TO SAE: 27/APR/2017.?DAY 1 IN 3 WEEKLY SCHEDULE
     Route: 042
     Dates: start: 20161121
  4. BUSPAR [Concomitant]
     Active Substance: BUSPIRONE HYDROCHLORIDE
     Indication: MYOCARDIAL INFARCTION
     Route: 048
     Dates: start: 2016, end: 20170501
  5. HERBEN [Concomitant]
     Indication: MYOCARDIAL INFARCTION
     Route: 048
     Dates: start: 2016, end: 20170501
  6. ANGIBID [Concomitant]
     Indication: MYOCARDIAL INFARCTION
     Route: 048
     Dates: start: 2016, end: 20170501
  7. CAPECITABINE. [Suspect]
     Active Substance: CAPECITABINE
     Indication: HER-2 POSITIVE GASTRIC CANCER
     Dosage: MOST RECENT DOSE (1300MG) PRIOR TO SAE: 30/APR/2017.?DAY 1-14 IN 3 WEEKLY SCHEDULE
     Route: 048
     Dates: start: 20161121
  8. LESCOL [Concomitant]
     Active Substance: FLUVASTATIN SODIUM
     Indication: MYOCARDIAL INFARCTION
     Route: 048
     Dates: start: 2016, end: 20170501
  9. TRASTUZUMAB. [Suspect]
     Active Substance: TRASTUZUMAB
     Indication: HER-2 POSITIVE GASTRIC CANCER
     Dosage: MOST RECENT DOSE (399MG) PRIOR TO SAE: 27/APR/2017.?DAY 1 IN 3 WEEKLY SCHEDULE
     Route: 042
     Dates: start: 20161121
  10. ASPIRIN. [Concomitant]
     Active Substance: ASPIRIN
     Indication: MYOCARDIAL INFARCTION
     Route: 048
     Dates: start: 2016, end: 20170501
  11. MEGESTROL [Concomitant]
     Active Substance: MEGESTROL
     Indication: PROPHYLAXIS
     Route: 048
     Dates: start: 20160316, end: 20170501

REACTIONS (2)
  - Febrile neutropenia [Fatal]
  - Pneumonia [Fatal]

NARRATIVE: CASE EVENT DATE: 20170501
